FAERS Safety Report 4493683-1 (Version None)
Quarter: 2004Q4

REPORT INFORMATION
  Report Type: 
  Country: None (occurrence: None)
  Receive Date: 20041103
  Receipt Date: 20041103
  Transmission Date: 20050328
  Serious: No
  Sender: FDA-Public Use
  Company Number: None

PATIENT
  Sex: Female
  Weight: 127.0072 kg

DRUGS (1)
  1. DEPO-PROVERA [Suspect]
     Dosage: 1 SHOT EVERY 90 DAYS INTRAVENOU
     Route: 042
     Dates: start: 19980601, end: 20041011

REACTIONS (4)
  - ALOPECIA [None]
  - DEPRESSION [None]
  - LIBIDO DECREASED [None]
  - WEIGHT INCREASED [None]
